FAERS Safety Report 17418012 (Version 2)
Quarter: 2020Q2

REPORT INFORMATION
  Report Type: Spontaneous
  Country: US (occurrence: US)
  Receive Date: 20200213
  Receipt Date: 20200409
  Transmission Date: 20200713
  Serious: No
  Sender: FDA-Public Use
  Company Number: US-ACTELION-A-US2020-201433

PATIENT
  Sex: Female

DRUGS (1)
  1. OPSUMIT [Suspect]
     Active Substance: MACITENTAN
     Indication: PULMONARY ARTERIAL HYPERTENSION
     Dosage: 10 MG
     Route: 048

REACTIONS (5)
  - Peripheral swelling [Unknown]
  - Pain in extremity [Unknown]
  - Chest discomfort [Unknown]
  - Sinusitis [Unknown]
  - Neck pain [Unknown]
